FAERS Safety Report 14488171 (Version 5)
Quarter: 2018Q2

REPORT INFORMATION
  Report Type: Report from Study
  Country: TW (occurrence: TW)
  Receive Date: 20180205
  Receipt Date: 20180518
  Transmission Date: 20180711
  Serious: Yes (Hospitalization, Other)
  Sender: FDA-Public Use
  Company Number: TW-BRISTOL-MYERS SQUIBB COMPANY-BMS-2018-006354

PATIENT
  Age: 71 Year
  Sex: Female

DRUGS (1)
  1. ABATACEPT [Suspect]
     Active Substance: ABATACEPT
     Indication: RHEUMATOID ARTHRITIS
     Dosage: 250 MG/2 VIAL, QMO
     Route: 041
     Dates: start: 20130218, end: 20180122

REACTIONS (3)
  - Inflammation [Unknown]
  - Osteomyelitis [Recovering/Resolving]
  - Wound infection staphylococcal [Unknown]

NARRATIVE: CASE EVENT DATE: 20180122
